FAERS Safety Report 6354089-3 (Version None)
Quarter: 2009Q3

REPORT INFORMATION
  Report Type: 
  Country: None (occurrence: None)
  Receive Date: 20090914
  Receipt Date: 20090903
  Transmission Date: 20100115
  Serious: Yes (Hospitalization)
  Sender: FDA-Public Use
  Company Number: PHHY2009KR37483

PATIENT
  Sex: Female

DRUGS (1)
  1. EXJADE [Suspect]
     Indication: IRON OVERLOAD
     Dosage: 1250 MG/DAY
     Route: 048
     Dates: start: 20070518

REACTIONS (4)
  - BLOOD COUNT ABNORMAL [None]
  - FACE INJURY [None]
  - SKIN BACTERIAL INFECTION [None]
  - SKIN GRAFT [None]
